FAERS Safety Report 21152971 (Version 4)
Quarter: 2024Q1

REPORT INFORMATION
  Report Type: Spontaneous
  Country: US (occurrence: US)
  Receive Date: 20220730
  Receipt Date: 20240109
  Transmission Date: 20240410
  Serious: No
  Sender: FDA-Public Use
  Company Number: US-SANOFI-01207313

PATIENT
  Age: 79 Year
  Sex: Male

DRUGS (8)
  1. JEVTANA [Suspect]
     Active Substance: CABAZITAXEL
     Indication: Bladder neoplasm
     Dosage: 5 MG, Q6W
     Dates: start: 20220120, end: 20220317
  2. JEVTANA [Suspect]
     Active Substance: CABAZITAXEL
     Dosage: 60 MG, Q6W 60MG/1.5ML, EVERY 6 WEEKS
     Route: 041
     Dates: start: 20220728
  3. JEVTANA [Suspect]
     Active Substance: CABAZITAXEL
     Dosage: 60 MG, Q3W 60MG/1.5ML, EVERY 3 WEEKS
     Route: 041
  4. JEVTANA [Suspect]
     Active Substance: CABAZITAXEL
     Dosage: 200 MG/1.14ML, QW
     Route: 043
     Dates: start: 20220728
  5. JEVTANA [Suspect]
     Active Substance: CABAZITAXEL
     Dosage: 5 MG, Q3W
     Route: 043
  6. JEVTANA [Suspect]
     Active Substance: CABAZITAXEL
     Dosage: 5 MG, Q6W
     Route: 043
  7. JEVTANA [Suspect]
     Active Substance: CABAZITAXEL
     Dosage: 5 MG, QW
     Route: 043
  8. KEVZARA [Concomitant]
     Active Substance: SARILUMAB

REACTIONS (5)
  - Off label use [Unknown]
  - Product use issue [Unknown]
  - Product prescribing error [Unknown]
  - Inappropriate schedule of product administration [Unknown]
  - Intentional product use issue [Unknown]

NARRATIVE: CASE EVENT DATE: 20220120
